FAERS Safety Report 19723337 (Version 1)
Quarter: 2021Q3

REPORT INFORMATION
  Report Type: Spontaneous
  Country: US (occurrence: US)
  Receive Date: 20210820
  Receipt Date: 20210820
  Transmission Date: 20211014
  Serious: No
  Sender: FDA-Public Use
  Company Number: US-AMGEN-USASP2021125698

PATIENT
  Sex: Female

DRUGS (13)
  1. CLINDAMYCIN HCL [Concomitant]
     Active Substance: CLINDAMYCIN HYDROCHLORIDE
     Dosage: UNK
     Route: 065
  2. FLUCONAZOLE. [Concomitant]
     Active Substance: FLUCONAZOLE
     Dosage: UNK
     Route: 065
  3. METHYLPREDNISOLONE. [Concomitant]
     Active Substance: METHYLPREDNISOLONE
     Dosage: UNK
     Route: 065
  4. PENICILLIN V POTASSIUM. [Concomitant]
     Active Substance: PENICILLIN V POTASSIUM
     Dosage: UNK
     Route: 065
  5. ENBREL [Suspect]
     Active Substance: ETANERCEPT
     Indication: PSORIASIS
     Dosage: 50 MILLIGRAM, QWK
     Route: 058
  6. HYDROCODONE/ACETAMINOPHEN [Concomitant]
     Active Substance: ACETAMINOPHEN\HYDROCODONE
     Dosage: UNK
     Route: 065
  7. PHENTERMINE HCL [Concomitant]
     Active Substance: PHENTERMINE HYDROCHLORIDE
     Dosage: UNK
     Route: 065
  8. ZAFIRLUKAST. [Concomitant]
     Active Substance: ZAFIRLUKAST
     Dosage: UNK
     Route: 065
  9. VALACYCLOVIR HCL [Concomitant]
     Active Substance: VALACYCLOVIR HYDROCHLORIDE
     Dosage: UNK
     Route: 065
  10. HYDROCODONE/IBUPROFEN [Concomitant]
     Active Substance: HYDROCODONE\IBUPROFEN
     Dosage: UNK
     Route: 065
  11. TRETINOIN. [Concomitant]
     Active Substance: TRETINOIN
     Dosage: UNK
     Route: 065
  12. ONDANSETRON HCL [Concomitant]
     Active Substance: ONDANSETRON HYDROCHLORIDE
     Dosage: UNK
     Route: 065
  13. CEPHALEXIN [CEFALEXIN MONOHYDRATE] [Concomitant]
     Active Substance: CEPHALEXIN MONOHYDRATE
     Dosage: UNK
     Route: 065

REACTIONS (1)
  - Therapeutic product effect decreased [Unknown]
